FAERS Safety Report 24199983 (Version 1)
Quarter: 2024Q3

REPORT INFORMATION
  Report Type: Spontaneous
  Country: CA (occurrence: CA)
  Receive Date: 20240812
  Receipt Date: 20240812
  Transmission Date: 20241017
  Serious: Yes (Death, Other)
  Sender: PFIZER
  Company Number: CA-PFIZER INC-2020270161

PATIENT
  Age: 79 Year
  Sex: Female

DRUGS (2)
  1. IBRANCE [Suspect]
     Active Substance: PALBOCICLIB
     Indication: Breast cancer metastatic
     Dosage: 100 MG  CYCLIC (DAILY, 21 DAYS ON, 7 DAYS OFF)
     Route: 048
     Dates: start: 20200325
  2. FASLODEX [Concomitant]
     Active Substance: FULVESTRANT
     Indication: Breast cancer metastatic
     Dosage: 250 MG IM INTO EACH BUTTOCK (TOTAL 500 MG) EVERY 4 WEEKS
     Route: 030

REACTIONS (2)
  - Death [Fatal]
  - Mouth ulceration [Not Recovered/Not Resolved]
